FAERS Safety Report 7167689-8 (Version None)
Quarter: 2010Q4

REPORT INFORMATION
  Report Type: 
  Country: None (occurrence: None)
  Receive Date: 20101216
  Receipt Date: 20100729
  Transmission Date: 20110411
  Serious: No
  Sender: FDA-Public Use
  Company Number: A0873137A

PATIENT
  Sex: Male

DRUGS (1)
  1. NICOTINE POLACRILEX [Suspect]
     Route: 048

REACTIONS (3)
  - CONDITION AGGRAVATED [None]
  - DENTAL CARIES [None]
  - INTENTIONAL DRUG MISUSE [None]
